FAERS Safety Report 10949067 (Version 1)
Quarter: 2015Q1

REPORT INFORMATION
  Report Type: Report from Study
  Country: JP (occurrence: JP)
  Receive Date: 20150324
  Receipt Date: 20150324
  Transmission Date: 20150721
  Serious: Yes (Death)
  Sender: FDA-Public Use
  Company Number: JP-ASTELLAS PHARMA GLOBAL DEVELOPMENT, INC.-J200501519

PATIENT
  Age: 10 Year
  Sex: Female
  Weight: 34 kg

DRUGS (6)
  1. MICAFUNGIN [Suspect]
     Active Substance: MICAFUNGIN
     Route: 041
     Dates: start: 20050223, end: 20050226
  2. MICAFUNGIN [Suspect]
     Active Substance: MICAFUNGIN
     Route: 041
     Dates: start: 20050227, end: 20050302
  3. MINOMYCIN [Concomitant]
     Active Substance: MINOCYCLINE HYDROCHLORIDE
     Indication: PRODUCT USED FOR UNKNOWN INDICATION
     Route: 065
     Dates: start: 20050210, end: 20050219
  4. VANCOMYCIN HYDROCHLORIDE. [Concomitant]
     Active Substance: VANCOMYCIN HYDROCHLORIDE
     Indication: PRODUCT USED FOR UNKNOWN INDICATION
     Route: 041
     Dates: start: 20050210, end: 20050302
  5. BENAMBAX [Concomitant]
     Active Substance: PENTAMIDINE
     Indication: PRODUCT USED FOR UNKNOWN INDICATION
     Route: 065
     Dates: start: 20050217, end: 20050222
  6. MEROPEN [Concomitant]
     Active Substance: MEROPENEM
     Indication: PRODUCT USED FOR UNKNOWN INDICATION
     Route: 041
     Dates: start: 20050227, end: 20050302

REACTIONS (1)
  - Death [Fatal]

NARRATIVE: CASE EVENT DATE: 20050302
